FAERS Safety Report 5387593-5 (Version None)
Quarter: 2007Q3

REPORT INFORMATION
  Report Type: 
  Country: None (occurrence: None)
  Receive Date: 20070711
  Receipt Date: 20070629
  Transmission Date: 20080115
  Serious: Yes (Hospitalization, Other)
  Sender: FDA-Public Use
  Company Number: 2007-02252

PATIENT
  Age: 44 Year
  Sex: Female
  Weight: 70 kg

DRUGS (4)
  1. VELCADE [Suspect]
     Indication: MULTIPLE MYELOMA
     Dosage: 2.00 MG, INTRAVENOUS
     Route: 042
     Dates: start: 20070604, end: 20070614
  2. DEXAMETHASONE 0.5MG TAB [Concomitant]
  3. ALFAROL (ALFACALCIDOL) [Concomitant]
  4. FAMOTIDINE [Concomitant]

REACTIONS (4)
  - DIARRHOEA [None]
  - PAROTITIS [None]
  - PLATELET COUNT DECREASED [None]
  - VIRAL INFECTION [None]
